FAERS Safety Report 8339559-0 (Version None)
Quarter: 2012Q2

REPORT INFORMATION
  Report Type: 
  Country: None (occurrence: None)
  Receive Date: 20120507
  Receipt Date: 20120501
  Transmission Date: 20120825
  Serious: Yes (Hospitalization)
  Sender: FDA-Public Use
  Company Number: PHEH2012US005746

PATIENT
  Sex: Female
  Weight: 45 kg

DRUGS (5)
  1. PERCOCET [Concomitant]
     Indication: PAIN
     Route: 048
  2. EXJADE [Suspect]
     Indication: IRON OVERLOAD
     Dosage: 17 MG/KG, DAILY (750 MG, DAILY)
     Route: 048
     Dates: start: 20060101
  3. CALCITRIOL [Concomitant]
     Dosage: 0.25 MG, BID
     Route: 048
  4. M.V.I. [Concomitant]
     Dosage: 1 U, DAILY
     Route: 048
  5. ATENOLOL [Concomitant]
     Indication: PALPITATIONS
     Dosage: 25 MG, DAILY
     Route: 048

REACTIONS (12)
  - NEUTROPHIL COUNT INCREASED [None]
  - BASOPHIL COUNT INCREASED [None]
  - HAEMATOCRIT DECREASED [None]
  - PLATELET COUNT INCREASED [None]
  - HAEMOGLOBIN DECREASED [None]
  - LYMPHOCYTE COUNT INCREASED [None]
  - IRON BINDING CAPACITY TOTAL [None]
  - MONOCYTE COUNT INCREASED [None]
  - EOSINOPHIL COUNT INCREASED [None]
  - MALIGNANT MELANOMA [None]
  - WHITE BLOOD CELL COUNT INCREASED [None]
  - RED BLOOD CELL COUNT DECREASED [None]
